FAERS Safety Report 4775288-8 (Version None)
Quarter: 2005Q3

REPORT INFORMATION
  Report Type: 
  Country: None (occurrence: None)
  Receive Date: 20050921
  Receipt Date: 20050921
  Transmission Date: 20060218
  Serious: Yes (Hospitalization)
  Sender: FDA-Public Use
  Company Number: None

PATIENT
  Age: 76 Year
  Sex: Female
  Weight: 120.2032 kg

DRUGS (1)
  1. LEVAQUIN [Suspect]
     Indication: BRONCHITIS

REACTIONS (3)
  - BRONCHITIS [None]
  - BRONCHOSPASM [None]
  - MYOCARDIAL INFARCTION [None]
